FAERS Safety Report 17212544 (Version 1)
Quarter: 2019Q4

REPORT INFORMATION
  Report Type: Spontaneous
  Country: TW (occurrence: TW)
  Receive Date: 20191230
  Receipt Date: 20191230
  Transmission Date: 20200122
  Serious: Yes (Hospitalization, Other)
  Sender: FDA-Public Use
  Company Number: TW-LUPIN PHARMACEUTICALS INC.-2019-08602

PATIENT
  Age: 36 Year
  Sex: Female

DRUGS (40)
  1. QUETIAPINE FUMARATE. [Suspect]
     Active Substance: QUETIAPINE FUMARATE
     Dosage: 600 MILLIGRAM, QD
     Route: 065
     Dates: start: 20171127, end: 20171204
  2. FLUOXETINE [Suspect]
     Active Substance: FLUOXETINE HYDROCHLORIDE
     Dosage: 20 MILLIGRAM, QD
     Route: 065
  3. HALOPERIDOL. [Suspect]
     Active Substance: HALOPERIDOL
     Indication: SCHIZOPHRENIA
     Dosage: 10 MILLIGRAM, QD
     Route: 065
     Dates: start: 20170620, end: 20170805
  4. BIPERIDEN [Concomitant]
     Active Substance: BIPERIDEN
     Dosage: 6 MILLIGRAM, QD
     Route: 065
     Dates: start: 20180108, end: 20180109
  5. PROPRANOLOL [Concomitant]
     Active Substance: PROPRANOLOL HYDROCHLORIDE
     Indication: PRODUCT USED FOR UNKNOWN INDICATION
     Dosage: 80 MILLIGRAM, QD
     Route: 065
     Dates: start: 20171211, end: 20180115
  6. BETAXOLOL. [Concomitant]
     Active Substance: BETAXOLOL
     Dosage: 10 MILLIGRAM, QD
     Route: 065
     Dates: start: 20180109, end: 20180110
  7. QUETIAPINE FUMARATE. [Suspect]
     Active Substance: QUETIAPINE FUMARATE
     Indication: SCHIZOPHRENIA
     Dosage: 400 MILLIGRAM, QD
     Route: 065
     Dates: start: 20170326, end: 20170805
  8. LAMOTRIGINE. [Suspect]
     Active Substance: LAMOTRIGINE
     Indication: SCHIZOPHRENIA
     Dosage: 25 MILLIGRAM, QD
     Route: 065
     Dates: start: 20171205, end: 20171208
  9. QUETIAPINE FUMARATE. [Suspect]
     Active Substance: QUETIAPINE FUMARATE
     Dosage: 400 MILLIGRAM, QD
     Route: 065
     Dates: start: 20171204, end: 20171211
  10. CITALOPRAM [Suspect]
     Active Substance: CITALOPRAM HYDROBROMIDE
     Indication: SCHIZOPHRENIA
     Dosage: 10 MILLIGRAM, QD
     Route: 065
     Dates: start: 20170306, end: 20170317
  11. CITALOPRAM [Suspect]
     Active Substance: CITALOPRAM HYDROBROMIDE
     Dosage: 20 MILLIGRAM, QD
     Route: 065
     Dates: start: 20171218, end: 20180109
  12. RISPERIDONE. [Concomitant]
     Active Substance: RISPERIDONE
     Dosage: 2 MILLIGRAM, QD
     Route: 065
  13. CLOZAPINE. [Concomitant]
     Active Substance: CLOZAPINE
     Indication: SCHIZOPHRENIA
     Dosage: 50 MILLIGRAM, QD
     Route: 065
     Dates: start: 20180108, end: 20180109
  14. CHLORPROMAZINE. [Concomitant]
     Active Substance: CHLORPROMAZINE
     Indication: SCHIZOPHRENIA
     Dosage: 50 MILLIGRAM, QD
     Route: 065
     Dates: start: 20171108, end: 20171205
  15. FLUPENTIXOL [Concomitant]
     Active Substance: FLUPENTIXOL
     Dosage: 6 MILLIGRAM, QD
     Route: 065
     Dates: start: 20170808, end: 20171108
  16. LAMOTRIGINE. [Suspect]
     Active Substance: LAMOTRIGINE
     Dosage: 50 MILLIGRAM, QD
     Route: 065
     Dates: start: 20171208, end: 20180109
  17. ZOTEPINE [Concomitant]
     Active Substance: ZOTEPINE
     Indication: SCHIZOPHRENIA
     Dosage: 75 MILLIGRAM, UNK
     Route: 065
     Dates: start: 20171127, end: 20171211
  18. ZOTEPINE [Concomitant]
     Active Substance: ZOTEPINE
     Dosage: 125 MILLIGRAM, QD
     Route: 065
     Dates: start: 20171201, end: 20171204
  19. FLUPENTIXOL [Concomitant]
     Active Substance: FLUPENTIXOL
     Indication: SCHIZOPHRENIA
     Dosage: 3 MILLIGRAM, QD
     Route: 065
     Dates: start: 20170326, end: 20170620
  20. QUETIAPINE FUMARATE. [Suspect]
     Active Substance: QUETIAPINE FUMARATE
     Dosage: 200 MILLIGRAM, QD
     Route: 065
  21. RISPERIDONE. [Concomitant]
     Active Substance: RISPERIDONE
     Indication: SCHIZOPHRENIA
     Dosage: 4 MILLIGRAM, QD
     Route: 065
     Dates: start: 20170125, end: 20170317
  22. PROPRANOLOL [Concomitant]
     Active Substance: PROPRANOLOL HYDROCHLORIDE
     Dosage: 30 MILLIGRAM, QD
     Route: 065
  23. LITHIUM. [Concomitant]
     Active Substance: LITHIUM
     Indication: SCHIZOPHRENIA
     Dosage: 600 MILLIGRAM, QD
     Route: 065
     Dates: start: 20170607, end: 20170706
  24. FLUPENTIXOL [Concomitant]
     Active Substance: FLUPENTIXOL
     Dosage: 6 MILLIGRAM, QD
     Route: 065
     Dates: start: 20170503, end: 20171201
  25. FLUPENTIXOL [Concomitant]
     Active Substance: FLUPENTIXOL
     Dosage: 3 MILLIGRAM, QD
     Route: 065
     Dates: start: 20170805, end: 20170808
  26. FLUPENTIXOL [Concomitant]
     Active Substance: FLUPENTIXOL
     Dosage: 9 MILLIGRAM, QD
     Route: 065
  27. QUETIAPINE FUMARATE. [Suspect]
     Active Substance: QUETIAPINE FUMARATE
     Dosage: 600 MILLIGRAM, QD
     Route: 065
     Dates: start: 20170805, end: 20171124
  28. ZOTEPINE [Concomitant]
     Active Substance: ZOTEPINE
     Dosage: 150 MILLIGRAM, QD
     Route: 065
     Dates: start: 20171211, end: 20180108
  29. BETAXOLOL. [Concomitant]
     Active Substance: BETAXOLOL
     Indication: SCHIZOPHRENIA
     Dosage: 20 MILLIGRAM, QD
     Route: 065
     Dates: start: 20171211, end: 20171218
  30. TRIHEXYPHENIDYL [Concomitant]
     Active Substance: TRIHEXYPHENIDYL
     Indication: SCHIZOPHRENIA
     Dosage: 6 MILLIGRAM, QD
     Route: 065
     Dates: start: 20171226, end: 20171229
  31. QUETIAPINE FUMARATE. [Suspect]
     Active Substance: QUETIAPINE FUMARATE
     Dosage: 800 MILLIGRAM, QD
     Route: 065
     Dates: start: 20171124, end: 20171127
  32. DULOXETINE. [Suspect]
     Active Substance: DULOXETINE
     Indication: SCHIZOPHRENIA
     Dosage: 30 MILLIGRAM, QD
     Route: 065
     Dates: start: 20170505, end: 20170805
  33. FLUOXETINE [Suspect]
     Active Substance: FLUOXETINE HYDROCHLORIDE
     Indication: SCHIZOPHRENIA
     Dosage: 40 MILLIGRAM, QD
     Route: 065
     Dates: start: 20171124, end: 20171127
  34. RISPERIDONE. [Concomitant]
     Active Substance: RISPERIDONE
     Dosage: 6 MILLIGRAM, QD
     Route: 065
  35. ARIPIPRAZOLE. [Concomitant]
     Active Substance: ARIPIPRAZOLE
     Indication: SCHIZOPHRENIA
     Dosage: 20 MILLIGRAM, QD
     Route: 065
     Dates: start: 20170317, end: 20170326
  36. CLOZAPINE. [Concomitant]
     Active Substance: CLOZAPINE
     Dosage: 100 MILLIGRAM, QD
     Route: 065
  37. ZOTEPINE [Concomitant]
     Active Substance: ZOTEPINE
     Dosage: 175 MILLIGRAM, QD
     Route: 065
     Dates: start: 20171204, end: 20171211
  38. BIPERIDEN [Concomitant]
     Active Substance: BIPERIDEN
     Indication: SCHIZOPHRENIA
     Dosage: 8 MILLIGRAM, QD
     Route: 065
     Dates: start: 20171229, end: 20180108
  39. FLUPENTIXOL [Concomitant]
     Active Substance: FLUPENTIXOL
     Dosage: 9 MILLIGRAM, QD
     Route: 065
     Dates: start: 20170601, end: 20170607
  40. FLUPENTIXOL [Concomitant]
     Active Substance: FLUPENTIXOL
     Dosage: 6 MILLIGRAM, QD
     Route: 065
     Dates: start: 20170607, end: 20170805

REACTIONS (6)
  - Rash [Recovering/Resolving]
  - Skin exfoliation [Recovering/Resolving]
  - Hyperprolactinaemia [Recovering/Resolving]
  - Drug titration error [Unknown]
  - Hallucination, auditory [Recovering/Resolving]
  - Drug ineffective [Unknown]

NARRATIVE: CASE EVENT DATE: 20171208
